FAERS Safety Report 12687055 (Version 1)
Quarter: 2016Q3

REPORT INFORMATION
  Report Type: Spontaneous
  Country: FR (occurrence: FR)
  Receive Date: 20160826
  Receipt Date: 20160826
  Transmission Date: 20161109
  Serious: Yes (Other)
  Sender: FDA-Public Use
  Company Number: FR-ROCHE-1817961

PATIENT
  Age: 67 Year
  Sex: Male

DRUGS (14)
  1. AMLODIPINE [Concomitant]
     Active Substance: AMLODIPINE BESYLATE
  2. PRAVASTATIN. [Concomitant]
     Active Substance: PRAVASTATIN
  3. KAYEXALATE [Concomitant]
     Active Substance: SODIUM POLYSTYRENE SULFONATE
  4. OROCAL D3 [Concomitant]
     Active Substance: CALCIUM CARBONATE\CHOLECALCIFEROL
  5. IRBESARTAN. [Concomitant]
     Active Substance: IRBESARTAN
  6. PREVISCAN (FRANCE) [Concomitant]
     Active Substance: FLUINDIONE
  7. LANSOPRAZOLE. [Concomitant]
     Active Substance: LANSOPRAZOLE
  8. BISOCE [Concomitant]
     Active Substance: BISOPROLOL
  9. ALLOPURINOL. [Concomitant]
     Active Substance: ALLOPURINOL
     Route: 065
  10. OMEXEL [Concomitant]
     Active Substance: TAMSULOSIN HYDROCHLORIDE
  11. PEGASYS [Suspect]
     Active Substance: PEGINTERFERON ALFA-2A
     Indication: HEPATITIS C
     Dosage: THERAPY LASTED FOR 3 MONTHS
     Route: 065
     Dates: start: 2007
  12. REBETOL [Suspect]
     Active Substance: RIBAVIRIN
     Indication: HEPATITIS C
     Dosage: THERAPY LASTED FOR 3 MONTHS
     Route: 048
     Dates: start: 2007
  13. ONEALFA [Concomitant]
     Active Substance: ALFACALCIDOL
  14. ADVAGRAF [Concomitant]
     Active Substance: TACROLIMUS

REACTIONS (4)
  - Thrombotic microangiopathy [Unknown]
  - Atrial fibrillation [Unknown]
  - Renal failure [Unknown]
  - Therapy non-responder [Unknown]
